APPROVED DRUG PRODUCT: ATROPINE SULFATE
Active Ingredient: ATROPINE SULFATE
Strength: 0.4MG/ML (0.4MG/ML)
Dosage Form/Route: SOLUTION;INTRAVENOUS
Application: A215969 | Product #001 | TE Code: AP
Applicant: SOMERSET THERAPEUTICS LLC
Approved: Jul 3, 2024 | RLD: No | RS: No | Type: RX